FAERS Safety Report 10717606 (Version 8)
Quarter: 2015Q2

REPORT INFORMATION
  Report Type: Spontaneous
  Country: US (occurrence: US)
  Receive Date: 20150116
  Receipt Date: 20150630
  Transmission Date: 20150821
  Serious: Yes (Hospitalization, Disabling, Other)
  Sender: FDA-Public Use
  Company Number: US-009507513-1105USA03914

PATIENT
  Sex: Female
  Weight: 47.17 kg

DRUGS (8)
  1. FOSAMAX PLUS D [Suspect]
     Active Substance: ALENDRONATE SODIUM\CHOLECALCIFEROL
     Indication: BONE DENSITY DECREASED
     Dosage: 70 MG/ 2800 IU, QW
     Route: 048
     Dates: start: 20070429, end: 20071111
  2. FOSAMAX [Suspect]
     Active Substance: ALENDRONATE SODIUM
     Dosage: 70 MG, QW
     Route: 048
  3. VITAMIN D [Concomitant]
     Active Substance: CHOLECALCIFEROL
     Dosage: 1000 MG, QD
     Dates: start: 1997, end: 2010
  4. ZOCOR [Concomitant]
     Active Substance: SIMVASTATIN
     Dosage: UNK
     Dates: start: 1997
  5. ALENDRONATE SODIUM. [Suspect]
     Active Substance: ALENDRONATE SODIUM
     Indication: BONE DENSITY DECREASED
     Dosage: 70 MG, QW
     Route: 048
     Dates: start: 20080310, end: 20110824
  6. CALCIUM (UNSPECIFIED) (+) VITAMIN D (UNSPECIFIED) [Concomitant]
     Active Substance: CALCIUM CARBONATE\VITAMIN D
     Dosage: 600MG-400MG, QD
     Dates: start: 1997, end: 2010
  7. EVISTA [Concomitant]
     Active Substance: RALOXIFENE HYDROCHLORIDE
     Dosage: UNK
     Dates: start: 1997
  8. FOSAMAX PLUS D [Suspect]
     Active Substance: ALENDRONATE SODIUM\CHOLECALCIFEROL
     Indication: OSTEOPOROSIS

REACTIONS (27)
  - Back pain [Unknown]
  - Body height decreased [Unknown]
  - Impaired healing [Unknown]
  - Osteoarthritis [Unknown]
  - Hypothyroidism [Unknown]
  - Dysphonia [Unknown]
  - Kyphosis [Unknown]
  - Arthralgia [Not Recovered/Not Resolved]
  - Intramedullary rod insertion [Unknown]
  - Bone disorder [Unknown]
  - Intramedullary rod insertion [Unknown]
  - Neoplasm [Unknown]
  - Dysmorphism [Unknown]
  - Femur fracture [Unknown]
  - Spinal fusion surgery [Unknown]
  - Hypertension [Unknown]
  - Chest pain [Unknown]
  - Nausea [Unknown]
  - Gastrooesophageal reflux disease [Unknown]
  - Hip arthroplasty [Unknown]
  - Spondylolisthesis [Unknown]
  - Herpes zoster [Unknown]
  - Femur fracture [Unknown]
  - Femur fracture [Recovering/Resolving]
  - Hypercholesterolaemia [Unknown]
  - Scoliosis [Unknown]
  - Back pain [Not Recovered/Not Resolved]

NARRATIVE: CASE EVENT DATE: 20030321
